FAERS Safety Report 4443699-6 (Version None)
Quarter: 2004Q3

REPORT INFORMATION
  Report Type: 
  Country: None (occurrence: None)
  Receive Date: 20040908
  Receipt Date: 20040823
  Transmission Date: 20050211
  Serious: Yes (Hospitalization)
  Sender: FDA-Public Use
  Company Number: CA-ROCHE-378398

PATIENT
  Age: 57 Year
  Sex: Female
  Weight: 127 kg

DRUGS (2)
  1. XENICAL [Suspect]
     Indication: OBESITY
     Route: 048
     Dates: start: 20040420, end: 20040815
  2. NEXIUM [Concomitant]
     Route: 048
     Dates: start: 20040814

REACTIONS (2)
  - CHOLELITHIASIS [None]
  - PANCREATITIS [None]
